FAERS Safety Report 11962764 (Version 1)
Quarter: 2016Q1

REPORT INFORMATION
  Report Type: Report from Study
  Country: US (occurrence: US)
  Receive Date: 20160126
  Receipt Date: 20160126
  Transmission Date: 20160526
  Serious: No
  Sender: FDA-Public Use
  Company Number: US-ABBVIE-15K-163-1382751-00

PATIENT
  Age: 51 Year
  Sex: Female

DRUGS (3)
  1. HUMIRA [Suspect]
     Active Substance: ADALIMUMAB
     Route: 065
     Dates: start: 20150408, end: 20150408
  2. HUMIRA [Suspect]
     Active Substance: ADALIMUMAB
     Route: 065
     Dates: start: 20150422
  3. HUMIRA [Suspect]
     Active Substance: ADALIMUMAB
     Indication: CROHN^S DISEASE
     Route: 065
     Dates: start: 20150325, end: 20150325

REACTIONS (7)
  - Injection site urticaria [Not Recovered/Not Resolved]
  - Ear discomfort [Unknown]
  - Injection site erythema [Not Recovered/Not Resolved]
  - Upper respiratory tract infection [Recovering/Resolving]
  - Injection site papule [Not Recovered/Not Resolved]
  - Conjunctivitis [Unknown]
  - Injection site erythema [Unknown]

NARRATIVE: CASE EVENT DATE: 201504
